FAERS Safety Report 7502864-1 (Version None)
Quarter: 2011Q2

REPORT INFORMATION
  Report Type: 
  Country: None (occurrence: None)
  Receive Date: 20110525
  Receipt Date: 20100817
  Transmission Date: 20111010
  Serious: No
  Sender: FDA-Public Use
  Company Number: US-NOVEN-ALL1-2010-04359

PATIENT

DRUGS (3)
  1. ZOLOFT [Concomitant]
  2. ZOLOFT [Concomitant]
     Dosage: 25 MG, 1X/DAY:QD
     Route: 048
  3. DAYTRANA [Suspect]
     Dosage: 10 MG, 1X/DAY:QD

REACTIONS (3)
  - FRUSTRATION [None]
  - NERVOUSNESS [None]
  - ACCIDENTAL EXPOSURE [None]
